FAERS Safety Report 5449752-2 (Version None)
Quarter: 2007Q3

REPORT INFORMATION
  Report Type: 
  Country: None (occurrence: None)
  Receive Date: 20070910
  Receipt Date: 20070830
  Transmission Date: 20080115
  Serious: Yes (Other)
  Sender: FDA-Public Use
  Company Number: GXKR2007DK07537

PATIENT
  Age: 65 Year
  Sex: Male
  Weight: 85 kg

DRUGS (1)
  1. THYCAPZOL (NGX) (THIAMAZOLE) UNKNOWN, 5MG [Suspect]
     Indication: HYPERMETABOLISM
     Dosage: UP TO 30 MG, QD, ORAL
     Route: 048
     Dates: start: 20070316

REACTIONS (3)
  - DIPLOPIA [None]
  - DRUG TOXICITY [None]
  - HYPOTHYROIDISM [None]
